FAERS Safety Report 24170877 (Version 1)
Quarter: 2024Q3

REPORT INFORMATION
  Report Type: Spontaneous
  Country: AU (occurrence: None)
  Receive Date: 20240805
  Receipt Date: 20240805
  Transmission Date: 20241016
  Serious: Yes (Hospitalization)
  Sender: ASTRAZENECA
  Company Number: 2024A176302

PATIENT
  Age: 48 Year
  Sex: Male

DRUGS (9)
  1. CRESTOR [Suspect]
     Active Substance: ROSUVASTATIN CALCIUM
     Route: 048
  2. ROSUVASTATIN CALCIUM [Suspect]
     Active Substance: ROSUVASTATIN CALCIUM
  3. ROSUVASTATIN CALCIUM [Suspect]
     Active Substance: ROSUVASTATIN CALCIUM
     Dosage: 10.0MG UNKNOWN
     Route: 048
  4. ACETAMINOPHEN [Suspect]
     Active Substance: ACETAMINOPHEN
     Dates: start: 20100502
  5. ERYTHROMYCIN [Suspect]
     Active Substance: ERYTHROMYCIN
     Dates: start: 20100502
  6. FENOFIBRATE [Suspect]
     Active Substance: FENOFIBRATE
     Indication: Xanthomatosis
     Dates: start: 20100502
  7. MEROPENEM [Suspect]
     Active Substance: MEROPENEM
     Route: 042
     Dates: start: 20100502
  8. NYSTATIN [Suspect]
     Active Substance: NYSTATIN
     Dates: start: 20100502
  9. PANTOPRAZOLE SODIUM [Suspect]
     Active Substance: PANTOPRAZOLE SODIUM
     Dates: start: 20100502

REACTIONS (6)
  - Hypertriglyceridaemia [Unknown]
  - Renal failure [Unknown]
  - Sepsis [Unknown]
  - Blood creatine phosphokinase increased [Recovered/Resolved]
  - Rhabdomyolysis [Recovered/Resolved]
  - Pancreatitis [Unknown]

NARRATIVE: CASE EVENT DATE: 20100506
